FAERS Safety Report 24032820 (Version 1)
Quarter: 2024Q3

REPORT INFORMATION
  Report Type: Spontaneous
  Country: DE (occurrence: DE)
  Receive Date: 20240701
  Receipt Date: 20240701
  Transmission Date: 20241016
  Serious: Yes (Other)
  Sender: EMD SERONO INC
  Company Number: DE-Merck Healthcare KGaA-2024011734

PATIENT
  Age: 27 Year
  Sex: Male
  Weight: 127 kg

DRUGS (2)
  1. MAVENCLAD [Suspect]
     Active Substance: CLADRIBINE
     Indication: Relapsing-remitting multiple sclerosis
     Dosage: CYCLE ONE THERAPY
     Dates: start: 20220524
  2. MAVENCLAD [Suspect]
     Active Substance: CLADRIBINE
     Dosage: CYCLE TWO THERAPY
     Dates: start: 20230724

REACTIONS (4)
  - White blood cell count decreased [Not Recovered/Not Resolved]
  - Lymphopenia [Not Recovered/Not Resolved]
  - Multiple sclerosis [Unknown]
  - Expanded disability status scale score increased [Unknown]

NARRATIVE: CASE EVENT DATE: 20230918
